FAERS Safety Report 6257120-9 (Version None)
Quarter: 2009Q3

REPORT INFORMATION
  Report Type: 
  Country: None (occurrence: None)
  Receive Date: 20090706
  Receipt Date: 20090625
  Transmission Date: 20100115
  Serious: Yes (Other)
  Sender: FDA-Public Use
  Company Number: B0581882A

PATIENT
  Sex: Male

DRUGS (2)
  1. AUGMENTIN '125' [Suspect]
     Indication: TOOTH ABSCESS
     Dosage: 1000MG PER DAY
     Route: 048
     Dates: start: 20090617, end: 20090617
  2. KETOPROFEN [Concomitant]
     Indication: TOOTHACHE
     Route: 048

REACTIONS (4)
  - FACE OEDEMA [None]
  - LOSS OF CONSCIOUSNESS [None]
  - PRURITUS [None]
  - URTICARIA [None]
